FAERS Safety Report 14680386 (Version 1)
Quarter: 2018Q1

REPORT INFORMATION
  Report Type: Spontaneous
  Country: JP (occurrence: JP)
  Receive Date: 20180326
  Receipt Date: 20180326
  Transmission Date: 20180509
  Serious: Yes (Other)
  Sender: FDA-Public Use
  Company Number: JP-DIAGNOSTIC GREEN GMBH-2044523

PATIENT
  Sex: Male

DRUGS (5)
  1. INDOCYANINE GREEN FOR INJECTION USP, 25 MG [Suspect]
     Active Substance: INDOCYANINE GREEN
     Indication: ANGIOGRAM RETINA
     Route: 042
  2. AFLIBERCEPT [Concomitant]
     Active Substance: AFLIBERCEPT
  3. FLUORESCEIN SODIUM. [Concomitant]
     Active Substance: FLUORESCEIN SODIUM
  4. LUCENTIS [Concomitant]
     Active Substance: RANIBIZUMAB
  5. VERTEPORFIN [Concomitant]
     Active Substance: VERTEPORFIN

REACTIONS (7)
  - Contrast media allergy [Unknown]
  - Urticaria [Unknown]
  - Disease progression [Unknown]
  - Therapy non-responder [Unknown]
  - Age-related macular degeneration [Unknown]
  - Visual acuity reduced [Unknown]
  - Cataract [Unknown]
